FAERS Safety Report 20090871 (Version 2)
Quarter: 2022Q1

REPORT INFORMATION
  Report Type: Spontaneous
  Country: JP (occurrence: JP)
  Receive Date: 20211119
  Receipt Date: 20220118
  Transmission Date: 20220423
  Serious: Yes (Death, Hospitalization)
  Sender: FDA-Public Use
  Company Number: JP-PFIZER INC-202101527745

PATIENT
  Age: 47 Year
  Sex: Female

DRUGS (6)
  1. LORBRENA [Suspect]
     Active Substance: LORLATINIB
     Indication: Non-small cell lung cancer
     Dosage: 100 MG, 1X/DAY (IN THE MORNING)
     Route: 048
     Dates: start: 20201119, end: 20201214
  2. CELECOXIB [Concomitant]
     Active Substance: CELECOXIB
     Indication: Pain management
     Dosage: 200 MG, 2X/DAY
     Route: 048
     Dates: start: 20200805, end: 20210105
  3. BETAMETHASONE [Concomitant]
     Active Substance: BETAMETHASONE
     Indication: Prophylaxis
     Dosage: 0.25 MG, ALTERNATE DAY
     Route: 048
     Dates: start: 20200718, end: 20210103
  4. CALCIUM LACTATE [Concomitant]
     Active Substance: CALCIUM LACTATE
     Indication: Mineral supplementation
     Dosage: 3 DF, 3X/DAY
     Route: 048
     Dates: start: 20200808
  5. NEXIUM [Concomitant]
     Active Substance: ESOMEPRAZOLE MAGNESIUM
     Indication: Peptic ulcer
     Dosage: 20 MG, 1X/DAY
     Route: 048
     Dates: start: 20200813
  6. HEPARIN CALCIUM [Concomitant]
     Active Substance: HEPARIN CALCIUM
     Indication: Thrombophlebitis migrans
     Dosage: 10000 IU IN 2 DIVIDED DOSES, DAILY
     Route: 058
     Dates: start: 20200824

REACTIONS (1)
  - Neoplasm progression [Fatal]

NARRATIVE: CASE EVENT DATE: 20201214
